FAERS Safety Report 5497911-5 (Version None)
Quarter: 2007Q4

REPORT INFORMATION
  Report Type: 
  Country: None (occurrence: None)
  Receive Date: 20071025
  Receipt Date: 20071012
  Transmission Date: 20080405
  Serious: Yes (Other)
  Sender: FDA-Public Use
  Company Number: US-PFIZER INC-2007074406

PATIENT
  Sex: Female
  Weight: 81 kg

DRUGS (3)
  1. CHANTIX [Suspect]
     Indication: SMOKING CESSATION THERAPY
     Route: 048
     Dates: start: 20070811, end: 20070827
  2. PREDNISONE [Suspect]
  3. NAPROSYN [Suspect]

REACTIONS (2)
  - HYPERSENSITIVITY [None]
  - URTICARIA [None]
